FAERS Safety Report 23177874 (Version 1)
Quarter: 2023Q4

REPORT INFORMATION
  Report Type: Spontaneous
  Country: TR (occurrence: None)
  Receive Date: 20231112
  Receipt Date: 20231112
  Transmission Date: 20240110
  Serious: Yes (Disabling)
  Sender: FDA-Public Use
  Company Number: None

PATIENT
  Age: 29 Year
  Sex: Male
  Weight: 65 kg

DRUGS (1)
  1. CIPRO [Suspect]
     Active Substance: CIPROFLOXACIN HYDROCHLORIDE
     Indication: Paranasal sinus inflammation
     Dosage: FREQUENCY : EVERY 12 HOURS;?
     Dates: start: 20231019, end: 20231026

REACTIONS (13)
  - Product use complaint [None]
  - Oesophageal pain [None]
  - Mydriasis [None]
  - Dysstasia [None]
  - Burning sensation [None]
  - Muscular weakness [None]
  - Spinal pain [None]
  - Nerve compression [None]
  - Pain in extremity [None]
  - Insomnia [None]
  - Peripheral coldness [None]
  - Bone pain [None]
  - Chondropathy [None]

NARRATIVE: CASE EVENT DATE: 20231026
